FAERS Safety Report 9648890 (Version 2)
Quarter: 2014Q2

REPORT INFORMATION
  Report Type: Spontaneous
  Country: US (occurrence: US)
  Receive Date: 20131028
  Receipt Date: 20140519
  Transmission Date: 20141212
  Serious: Yes (Other)
  Sender: FDA-Public Use
  Company Number: US-SA-2013SA107885

PATIENT
  Age: 56 Year
  Sex: Female

DRUGS (4)
  1. LANTUS [Suspect]
     Indication: TYPE 1 DIABETES MELLITUS
     Dosage: DOSE:23 UNIT(S)
     Route: 058
     Dates: start: 20130515
  2. LANTUS SOLOSTAR [Suspect]
     Route: 058
  3. SOLOSTAR [Concomitant]
  4. ENALAPRIL [Concomitant]

REACTIONS (11)
  - Cardiovascular disorder [Unknown]
  - Skin lesion [Unknown]
  - Fatigue [Unknown]
  - Somnolence [Not Recovered/Not Resolved]
  - Peripheral swelling [Not Recovered/Not Resolved]
  - Swelling [Not Recovered/Not Resolved]
  - Asthenia [Not Recovered/Not Resolved]
  - Bradyphrenia [Not Recovered/Not Resolved]
  - Blood glucose decreased [Unknown]
  - Blood glucose increased [Unknown]
  - Injection site reaction [Unknown]
